FAERS Safety Report 5254491-7 (Version None)
Quarter: 2007Q1

REPORT INFORMATION
  Report Type: 
  Country: None (occurrence: None)
  Receive Date: 20061201
  Receipt Date: 20060905
  Transmission Date: 20070707
  Serious: No
  Sender: FDA-Public Use
  Company Number: 2006PV020751

PATIENT
  Age: 44 Year
  Sex: Female
  Weight: 128.368 kg

DRUGS (6)
  1. BYETTA [Suspect]
     Indication: DIABETES MELLITUS NON-INSULIN-DEPENDENT
     Dosage: 5 MCG;BID;SC 10 MCG;BID;SC
     Route: 058
     Dates: start: 20060822, end: 20060920
  2. BYETTA [Suspect]
     Indication: DIABETES MELLITUS NON-INSULIN-DEPENDENT
     Dosage: 5 MCG;BID;SC 10 MCG;BID;SC
     Route: 058
     Dates: start: 20060921
  3. BYETTA [Suspect]
  4. AMARYL [Concomitant]
  5. ACTOS /USA/ [Concomitant]
  6. AMARYL [Concomitant]

REACTIONS (10)
  - BLOOD GLUCOSE DECREASED [None]
  - BLOOD GLUCOSE FLUCTUATION [None]
  - BLOOD GLUCOSE INCREASED [None]
  - DIZZINESS [None]
  - EMOTIONAL DISTRESS [None]
  - INJECTION SITE BRUISING [None]
  - INJECTION SITE HAEMORRHAGE [None]
  - INJECTION SITE PAIN [None]
  - INJECTION SITE REACTION [None]
  - STRESS [None]
